FAERS Safety Report 10446350 (Version 2)
Quarter: 2014Q3

REPORT INFORMATION
  Report Type: Report from Study
  Country: US (occurrence: US)
  Receive Date: 20140911
  Receipt Date: 20140929
  Transmission Date: 20150326
  Serious: Yes (Hospitalization)
  Sender: FDA-Public Use
  Company Number: US-BIOGENIDEC-2014BI092504

PATIENT
  Sex: Male

DRUGS (1)
  1. TYSABRI [Suspect]
     Active Substance: NATALIZUMAB
     Indication: CROHN^S DISEASE
     Route: 042
     Dates: start: 20140207, end: 20140715

REACTIONS (4)
  - Abdominal infection [Not Recovered/Not Resolved]
  - Pelvic abscess [Not Recovered/Not Resolved]
  - Malaise [Unknown]
  - Colostomy [Not Recovered/Not Resolved]
